FAERS Safety Report 9383825 (Version 1)
Quarter: 2013Q3

REPORT INFORMATION
  Report Type: Spontaneous
  Country: CN (occurrence: CN)
  Receive Date: 20130704
  Receipt Date: 20130704
  Transmission Date: 20140515
  Serious: Yes (Life-Threatening)
  Sender: FDA-Public Use
  Company Number: CN-009507513-1306CHN014516

PATIENT
  Age: 20 Year
  Sex: Female

DRUGS (2)
  1. CLARITYNE [Suspect]
     Indication: RASH
     Dosage: 2 TABLET, BID
     Route: 048
     Dates: start: 20130624, end: 20130625
  2. CALAMINE [Concomitant]
     Indication: RASH
     Dosage: UNK
     Dates: start: 20130624

REACTIONS (3)
  - Dermatitis allergic [Recovering/Resolving]
  - Overdose [Unknown]
  - Syncope [Recovering/Resolving]
